FAERS Safety Report 24280344 (Version 1)
Quarter: 2024Q3

REPORT INFORMATION
  Report Type: Spontaneous
  Country: DE (occurrence: DE)
  Receive Date: 20240904
  Receipt Date: 20240904
  Transmission Date: 20241016
  Serious: Yes (Hospitalization, Other)
  Sender: NOVARTIS
  Company Number: DE-002147023-NVSC2024DE177112

PATIENT
  Sex: Female

DRUGS (1)
  1. COSENTYX [Suspect]
     Active Substance: SECUKINUMAB
     Indication: Hidradenitis
     Dosage: 300 MG
     Route: 065
     Dates: start: 202406, end: 202408

REACTIONS (1)
  - Cutaneous vasculitis [Unknown]

NARRATIVE: CASE EVENT DATE: 20240801
